FAERS Safety Report 20797914 (Version 1)
Quarter: 2022Q2

REPORT INFORMATION
  Report Type: Spontaneous
  Country: ZA (occurrence: ZA)
  Receive Date: 20220506
  Receipt Date: 20220506
  Transmission Date: 20220720
  Serious: Yes (Other)
  Sender: FDA-Public Use
  Company Number: ZA-009507513-2204ZAF000869

PATIENT
  Age: 34 Year
  Sex: Male
  Weight: 113 kg

DRUGS (9)
  1. TEMOZOLOMIDE [Suspect]
     Active Substance: TEMOZOLOMIDE
     Indication: Glioblastoma multiforme
     Dosage: 40 MILLIGRAM
     Route: 048
     Dates: start: 20210806, end: 20211005
  2. TEMOZOLOMIDE [Suspect]
     Active Substance: TEMOZOLOMIDE
     Indication: Meningioma malignant
  3. PEMBROLIZUMAB [Suspect]
     Active Substance: PEMBROLIZUMAB
  4. AVASTIN [Suspect]
     Active Substance: BEVACIZUMAB
     Indication: Glioblastoma multiforme
  5. AVASTIN [Suspect]
     Active Substance: BEVACIZUMAB
     Indication: Meningioma malignant
  6. MEDROL [Concomitant]
     Active Substance: METHYLPREDNISOLONE
  7. EPILIM [Concomitant]
     Active Substance: VALPROATE SODIUM
  8. ESOMEPRAZOLE [Concomitant]
     Active Substance: ESOMEPRAZOLE
  9. KEPPRA [Concomitant]
     Active Substance: LEVETIRACETAM

REACTIONS (2)
  - Meningioma malignant [Unknown]
  - Product prescribing issue [Unknown]

NARRATIVE: CASE EVENT DATE: 20211001
